FAERS Safety Report 20625183 (Version 2)
Quarter: 2022Q4

REPORT INFORMATION
  Report Type: Spontaneous
  Country: US (occurrence: US)
  Receive Date: 20220323
  Receipt Date: 20221020
  Transmission Date: 20230113
  Serious: No
  Sender: FDA-Public Use
  Company Number: US-BIOGEN-2016BI00279272

PATIENT
  Sex: Female

DRUGS (17)
  1. TYSABRI [Suspect]
     Active Substance: NATALIZUMAB
     Indication: Multiple sclerosis
     Route: 050
     Dates: start: 20090522, end: 20090522
  2. TYSABRI [Suspect]
     Active Substance: NATALIZUMAB
     Route: 050
     Dates: start: 20100709
  3. LIVALO [Concomitant]
     Active Substance: PITAVASTATIN CALCIUM
     Route: 050
  4. ATORVASTATIN [Concomitant]
     Active Substance: ATORVASTATIN
     Route: 050
  5. MICROGESTIN [Concomitant]
     Active Substance: ETHINYL ESTRADIOL\NORETHINDRONE ACETATE
     Route: 050
  6. DEXTROAMPHETAMINE SULFATE [Concomitant]
     Active Substance: DEXTROAMPHETAMINE SULFATE
     Route: 050
  7. ACETAMINOPHEN [Concomitant]
     Active Substance: ACETAMINOPHEN
     Route: 050
  8. TRIMETHOPRIM [Concomitant]
     Active Substance: TRIMETHOPRIM
     Route: 050
  9. MYRBETRIQ [Concomitant]
     Active Substance: MIRABEGRON
     Route: 050
  10. MODAFINIL [Concomitant]
     Active Substance: MODAFINIL
     Route: 050
  11. MOMETASONE [Concomitant]
     Active Substance: MOMETASONE
     Route: 050
  12. DICLOFENAC [Concomitant]
     Active Substance: DICLOFENAC
     Route: 050
  13. CYCLOBENZAPRINE [Concomitant]
     Active Substance: CYCLOBENZAPRINE
     Route: 050
  14. Clotrimazole Betamethasone [Concomitant]
     Route: 050
  15. CITALOPRAM [Concomitant]
     Active Substance: CITALOPRAM HYDROBROMIDE
     Route: 050
  16. BUSPIRONE [Concomitant]
     Active Substance: BUSPIRONE HYDROCHLORIDE
     Route: 050
  17. OCREVUS [Concomitant]
     Active Substance: OCRELIZUMAB
     Route: 050

REACTIONS (1)
  - Multiple sclerosis relapse [Unknown]
